FAERS Safety Report 17211378 (Version 2)
Quarter: 2020Q1

REPORT INFORMATION
  Report Type: Report from Study
  Country: None (occurrence: TR)
  Receive Date: 20191228
  Receipt Date: 20200110
  Transmission Date: 20200409
  Serious: Yes (Hospitalization)
  Sender: FDA-Public Use
  Company Number: TR-ABBVIE-19K-161-3210149-00

PATIENT
  Sex: Female
  Weight: 62 kg

DRUGS (2)
  1. LEVODOPA/CARBIDOPA [Suspect]
     Active Substance: CARBIDOPA\LEVODOPA
     Indication: PARKINSON^S DISEASE
     Dosage: MORNING DOSE(ML):3.50 CONTINUES DOSE(ML):1.40 EXTRA DOSE(ML):1.00
     Route: 050
     Dates: start: 20190910, end: 20191224
  2. LEVODOPA/CARBIDOPA [Suspect]
     Active Substance: CARBIDOPA\LEVODOPA
     Dosage: MORNING DOSE(ML):5.50 CONTINUES DOSE(ML):2.00 EXTRA DOSE(ML):1.400
     Route: 050
     Dates: start: 20191224

REACTIONS (2)
  - Bradykinesia [Recovered/Resolved]
  - Gait inability [Recovered/Resolved]

NARRATIVE: CASE EVENT DATE: 2019
